FAERS Safety Report 16167748 (Version 1)
Quarter: 2019Q2

REPORT INFORMATION
  Report Type: Spontaneous
  Country: US (occurrence: US)
  Receive Date: 20190408
  Receipt Date: 20190408
  Transmission Date: 20190711
  Serious: Yes (Other)
  Sender: FDA-Public Use
  Company Number: US-PHARMING-PHAUS2019000227

PATIENT

DRUGS (18)
  1. HEPARIN [Concomitant]
     Active Substance: HEPARIN SODIUM
  2. PROTONIX [Concomitant]
     Active Substance: PANTOPRAZOLE SODIUM
  3. LAMOTRIGINE. [Concomitant]
     Active Substance: LAMOTRIGINE
  4. NEURONTIN [Concomitant]
     Active Substance: GABAPENTIN
  5. DICYCLOMINE [Concomitant]
     Active Substance: DICYCLOMINE HYDROCHLORIDE
  6. RUCONEST [Suspect]
     Active Substance: HUMAN C1-ESTERASE INHIBITOR
     Indication: HEREDITARY ANGIOEDEMA
     Dosage: 3000 IU, TWICE WEEKLY
     Route: 042
     Dates: start: 20170926
  7. HYDROCHLOROTHIAZIDE. [Concomitant]
     Active Substance: HYDROCHLOROTHIAZIDE
     Dosage: UNK
  8. RANITIDINE. [Concomitant]
     Active Substance: RANITIDINE
  9. FAMOTIDINE. [Concomitant]
     Active Substance: FAMOTIDINE
  10. OXYCODONE [Concomitant]
     Active Substance: OXYCODONE
  11. FIRAZYR [Concomitant]
     Active Substance: ICATIBANT ACETATE
     Dosage: UNK
  12. NEXIUM [Concomitant]
     Active Substance: ESOMEPRAZOLE MAGNESIUM
  13. ZOFRAN [Concomitant]
     Active Substance: ONDANSETRON HYDROCHLORIDE
  14. APRISO [Concomitant]
     Active Substance: MESALAMINE
  15. SODIUM CHLORIDE. [Concomitant]
     Active Substance: SODIUM CHLORIDE
  16. EPINEPHRINE. [Concomitant]
     Active Substance: EPINEPHRINE
  17. BACLOFEN. [Concomitant]
     Active Substance: BACLOFEN
  18. STERILE WATER [Concomitant]
     Active Substance: WATER

REACTIONS (1)
  - Loss of consciousness [Unknown]
